FAERS Safety Report 7264696-1 (Version None)
Quarter: 2011Q1

REPORT INFORMATION
  Report Type: 
  Country: None (occurrence: None)
  Receive Date: 20110131
  Receipt Date: 20110127
  Transmission Date: 20110831
  Serious: Yes (Hospitalization)
  Sender: FDA-Public Use
  Company Number: JP-PFIZER INC-2007052523

PATIENT
  Age: 58 Year
  Sex: Male

DRUGS (12)
  1. TRUVADA [Suspect]
     Dosage: 1 DF, ALTERNATE DAY
     Route: 048
     Dates: start: 20070718
  2. STOCRIN [Concomitant]
     Indication: HIV INFECTION
     Route: 048
     Dates: start: 20070606, end: 20070613
  3. NORVIR [Suspect]
     Indication: HIV INFECTION
     Dosage: 100 MG, UNK
     Route: 048
     Dates: start: 20070718
  4. FOSCAVIR [Suspect]
     Dosage: 2.4 MG/KG, 2X/DAY
     Route: 042
     Dates: start: 20070401, end: 20070507
  5. AZITHROMYCIN [Suspect]
     Indication: OPPORTUNISTIC INFECTION PROPHYLAXIS
     Route: 048
     Dates: start: 20070207, end: 20070530
  6. FOSCAVIR [Suspect]
     Dosage: 2.4 MG/KG, 1X/DAY
     Route: 042
     Dates: start: 20070508, end: 20070710
  7. MICAFUNGIN [Concomitant]
     Route: 042
     Dates: start: 20070330, end: 20070611
  8. AZITHROMYCIN [Suspect]
     Route: 048
     Dates: start: 20070612
  9. EPZICOM [Concomitant]
     Indication: HIV INFECTION
     Dosage: 1 TABLET
     Route: 048
     Dates: start: 20070606, end: 20070614
  10. REYATAZ [Suspect]
     Indication: HIV INFECTION
     Dosage: 300 MG, UNK
     Route: 048
     Dates: start: 20070718
  11. FOSCAVIR [Suspect]
     Indication: CYTOMEGALOVIRUS VIRAEMIA
     Dosage: 3.8 MG/KG, 1X/DAY
     Route: 042
     Dates: start: 20070311, end: 20070710
  12. ITRACONAZOLE [Concomitant]
     Route: 048
     Dates: start: 20070612

REACTIONS (6)
  - DRUG ERUPTION [None]
  - GLAUCOMA [None]
  - RENAL IMPAIRMENT [None]
  - HYPONATRAEMIA [None]
  - HYPOKALAEMIA [None]
  - UVEITIS [None]
